FAERS Safety Report 13119078 (Version 1)
Quarter: 2017Q1

REPORT INFORMATION
  Report Type: Spontaneous
  Country: BR (occurrence: BR)
  Receive Date: 20170116
  Receipt Date: 20170116
  Transmission Date: 20170428
  Serious: Yes (Other)
  Sender: FDA-Public Use
  Company Number: BR-SA-2017SA003811

PATIENT
  Sex: Female

DRUGS (1)
  1. DAONIL [Suspect]
     Active Substance: GLYBURIDE
     Route: 065

REACTIONS (3)
  - Exposure during pregnancy [Unknown]
  - Drug dispensing error [Unknown]
  - Abortion threatened [Unknown]
